FAERS Safety Report 4601124-6 (Version None)
Quarter: 2005Q1

REPORT INFORMATION
  Report Type: 
  Country: None (occurrence: None)
  Receive Date: 20050307
  Receipt Date: 20050307
  Transmission Date: 20050727
  Serious: Yes (Death)
  Sender: FDA-Public Use
  Company Number: None

PATIENT
  Sex: Male
  Weight: 108.9 kg

DRUGS (7)
  1. RITUXIMAB [Suspect]
     Dosage: CYCLE=21 DAYS, MAXIMUM OF 6 CYCLES
     Route: 042
     Dates: start: 20050118
  2. ETOPOSIDE [Suspect]
     Dosage: 50 MG/M2/24 HOURS CIV BEGINNING ON DAY 1 X 4 DAYS
     Route: 042
     Dates: start: 20050118, end: 20050211
  3. DOXORUBICIN HCL [Suspect]
     Dosage: 10 MG/M2/24 HOURS CIV BEGINING ON DAY 1 X 4 DAYS
     Route: 042
     Dates: start: 20050118, end: 20050211
  4. VINCRISTINE [Suspect]
     Dosage: 0.4 MG/M2/24 HOURS CIV BEGINNING ON DAY 1 X 4 DAYS
     Route: 042
     Dates: start: 20040118, end: 20050211
  5. PREDNISONE [Suspect]
     Dosage: 60 MG/M2/DAY PO ON DAYS 1-5
     Route: 048
     Dates: start: 20050118, end: 20050212
  6. CYCLOPHOSPHAMIDE [Suspect]
     Dosage: 375 MG/M2 IV OVER 1 HOUR ON DAY 5
     Route: 042
     Dates: start: 20050118, end: 20050212
  7. G-CSF [Suspect]
     Dosage: 5 UG/KG SC QD BEGINNING DAY 6 X 10 DAYS OR UNTIL NEUTROPHIL COUNT }10,000 CELLS/MM3.
     Route: 058
     Dates: start: 20050118

REACTIONS (5)
  - BACK PAIN [None]
  - BODY TEMPERATURE INCREASED [None]
  - BONE PAIN [None]
  - POST PROCEDURAL NAUSEA [None]
  - POST PROCEDURAL VOMITING [None]
